FAERS Safety Report 6544542-1 (Version None)
Quarter: 2010Q1

REPORT INFORMATION
  Report Type: 
  Country: None (occurrence: None)
  Receive Date: 20100120
  Receipt Date: 20100120
  Transmission Date: 20100710
  Serious: Yes (Hospitalization)
  Sender: FDA-Public Use
  Company Number: None

PATIENT
  Sex: Female
  Weight: 78.1 kg

DRUGS (11)
  1. TEMOZOLOMIDE [Suspect]
     Dosage: 10 MG
     Dates: end: 20100112
  2. ATIVAN [Concomitant]
  3. COMPAZINE [Concomitant]
  4. KEPPRA [Concomitant]
  5. TEMODAR [Concomitant]
  6. ZOFRAN [Concomitant]
  7. BACTRIM [Concomitant]
  8. DECADRON [Concomitant]
  9. MILK OF MAGNESIA TAB [Concomitant]
  10. PEPCID [Concomitant]
  11. TYLENOL-500 [Concomitant]

REACTIONS (6)
  - CHEST DISCOMFORT [None]
  - CHEST PAIN [None]
  - DYSPNOEA [None]
  - MUSCULAR WEAKNESS [None]
  - OEDEMA PERIPHERAL [None]
  - PAIN IN EXTREMITY [None]
